FAERS Safety Report 10865975 (Version 3)
Quarter: 2015Q1

REPORT INFORMATION
  Report Type: Report from Study
  Country: US (occurrence: US)
  Receive Date: 20150224
  Receipt Date: 20150330
  Transmission Date: 20150721
  Serious: Yes (Death, Hospitalization)
  Sender: FDA-Public Use
  Company Number: US-ACTELION-A-NJ2015-113257

PATIENT
  Age: 71 Year
  Sex: Male

DRUGS (2)
  1. VENTAVIS [Suspect]
     Active Substance: ILOPROST
     Indication: PULMONARY HYPERTENSION
     Dosage: 5 MCG, 5-6X DAILY
     Route: 055
     Dates: start: 20050921
  2. TRACLEER [Suspect]
     Active Substance: BOSENTAN\BOSENTAN MONOHYDRATE
     Indication: PULMONARY HYPERTENSION
     Dosage: UNK
     Route: 048

REACTIONS (4)
  - Fall [Recovered/Resolved]
  - Contusion [Recovered/Resolved]
  - Death [Fatal]
  - Balance disorder [Recovered/Resolved]

NARRATIVE: CASE EVENT DATE: 20150115
